FAERS Safety Report 12682229 (Version 1)
Quarter: 2016Q3

REPORT INFORMATION
  Report Type: Spontaneous
  Country: BR (occurrence: BR)
  Receive Date: 20160824
  Receipt Date: 20160824
  Transmission Date: 20161109
  Serious: Yes (Other)
  Sender: FDA-Public Use
  Company Number: BR-009507513-1608BRA011061

PATIENT
  Age: 24 Year
  Sex: Female

DRUGS (1)
  1. NUVARING [Suspect]
     Active Substance: ETHINYL ESTRADIOL\ETONOGESTREL
     Indication: MENSTRUAL CYCLE MANAGEMENT
     Dosage: UNK
     Route: 067
     Dates: start: 201505, end: 20160817

REACTIONS (5)
  - Nausea [Unknown]
  - Off label use [Unknown]
  - Unintended pregnancy [Unknown]
  - Pregnancy on contraceptive [Unknown]
  - Somnolence [Unknown]

NARRATIVE: CASE EVENT DATE: 201505
